FAERS Safety Report 4854821-1 (Version None)
Quarter: 2005Q4

REPORT INFORMATION
  Report Type: 
  Country: None (occurrence: None)
  Receive Date: 20051214
  Receipt Date: 20051214
  Transmission Date: 20060501
  Serious: No
  Sender: FDA-Public Use
  Company Number: None

PATIENT
  Age: 45 Year
  Sex: Female

DRUGS (2)
  1. CISPLATIN [Suspect]
  2. VINORELBINE TARTRATE [Suspect]

REACTIONS (11)
  - ASTHENIA [None]
  - CERVIX CARCINOMA RECURRENT [None]
  - CHILLS [None]
  - COLD SWEAT [None]
  - CONSTIPATION [None]
  - COUGH [None]
  - DIFFICULTY IN WALKING [None]
  - DYSURIA [None]
  - FATIGUE [None]
  - FEBRILE NEUTROPENIA [None]
  - GASTROINTESTINAL MOTILITY DISORDER [None]
